FAERS Safety Report 9896067 (Version 1)
Quarter: 2014Q1

REPORT INFORMATION
  Report Type: Spontaneous
  Country: US (occurrence: US)
  Receive Date: 20140213
  Receipt Date: 20140213
  Transmission Date: 20141002
  Serious: No
  Sender: FDA-Public Use
  Company Number: US-BRISTOL-MYERS SQUIBB COMPANY-19033760

PATIENT
  Age: 43 Year
  Sex: Male
  Weight: 79.36 kg

DRUGS (3)
  1. ABATACEPT SUBQ INJECTION 125MG/ML [Suspect]
     Dosage: 1DF:125MG/ML
     Route: 058
  2. VICODIN ES [Concomitant]
     Dosage: 1DF:7.5-750 UNITS NOS?TABS
  3. ATENOLOL TABS [Concomitant]

REACTIONS (1)
  - Drug ineffective [Unknown]
